FAERS Safety Report 8618890 (Version 2)
Quarter: 2012Q4

REPORT INFORMATION
  Report Type: 
  Country: US (occurrence: US)
  Receive Date: 20120618
  Receipt Date: 20120828
  Transmission Date: 20130627
  Serious: Yes (Life-Threatening, Hospitalization, Disabling)
  Sender: FDA-Public Use
  Company Number: US-BAYER-2012-057310

PATIENT
  Age: 45 Year
  Sex: Female

DRUGS (32)
  1. YAZ [Suspect]
  2. YASMIN [Suspect]
  3. OCELLA [Suspect]
  4. LYRICA [Concomitant]
     Dosage: 300 mg, BID
     Route: 048
     Dates: start: 20080709
  5. DICYCLOMINE [Concomitant]
     Dosage: 20 mg, UNK
     Dates: start: 20080601
  6. DICYCLOMINE [Concomitant]
     Dosage: 20 mg, UNK
     Dates: start: 20080622
  7. MINOCYCLINE [Concomitant]
     Dosage: 100 mg, UNK
     Dates: start: 20071217, end: 20080808
  8. MINOCYCLINE [Concomitant]
     Dosage: 100 mg, UNK
     Dates: start: 20080808, end: 20081217
  9. CIPROFLOXACIN [Concomitant]
     Dosage: 500 mg, UNK
     Route: 048
     Dates: start: 20080521
  10. SINGULAIR [Concomitant]
     Dosage: 10 mg, QD
     Route: 048
     Dates: start: 20080605, end: 20080730
  11. ETODOLAC [Concomitant]
     Dosage: 300 daily
     Route: 048
     Dates: start: 20050505, end: 20080730
  12. ZOLOFT [Concomitant]
     Dosage: 100 nightly
     Route: 048
  13. LISINOPRIL [Concomitant]
     Dosage: 5 mg, QD
     Route: 048
     Dates: start: 20080505, end: 20080729
  14. ACTOS [Concomitant]
     Dosage: 45 mg a day
     Route: 048
     Dates: start: 20080702, end: 20081001
  15. FEXOFENADINE [Concomitant]
     Dosage: 100 mg, QD
     Route: 048
     Dates: start: 20080709, end: 20081001
  16. LANTUS [Concomitant]
     Dosage: 18 units at night
  17. TORSEMIDE [Concomitant]
     Dosage: 20mg every 8 hours prn (as needed)
     Route: 048
     Dates: start: 20080516, end: 20081027
  18. CYCLOBENZAPRINE [Concomitant]
     Dosage: 10 mg, QD
     Route: 048
     Dates: start: 20080505, end: 20080829
  19. METFORMIN [Concomitant]
     Dosage: 1000 mg, BID
     Route: 048
  20. FLUCONAZOLE [Concomitant]
     Dosage: 1000 mg, QD
     Route: 048
     Dates: start: 20080521
  21. VENLAFAXINE [Concomitant]
     Dosage: 75 mg, 2 TABLETS BID
     Route: 048
     Dates: start: 20080605
  22. AMITRIPTYLINE [Concomitant]
     Dosage: 75mg nightly
     Route: 048
     Dates: start: 20080527, end: 20080702
  23. LIPITOR [Concomitant]
     Dosage: 40 mg, QD
     Route: 048
     Dates: start: 20080611, end: 20081002
  24. OMEPRAZOLE [Concomitant]
     Dosage: 20 mg, BID
     Route: 048
     Dates: start: 20080611, end: 20080829
  25. GLIPIZIDE [Concomitant]
     Dosage: 10 mg, BID
     Route: 048
     Dates: start: 20080521, end: 20080815
  26. PULMICORT [Concomitant]
     Dosage: 1 puff(s), QD
     Route: 045
  27. MULTIVITAMINS AND IRON [Concomitant]
     Dosage: 1 TID a day
     Route: 048
  28. HYDROCODONE [Concomitant]
     Dosage: 10/325mg one q 4 h prn (every 4 hours as needed)
     Route: 048
     Dates: start: 20080811
  29. REQUIP [Concomitant]
     Route: 048
  30. BUSPIRONE [Concomitant]
     Dosage: 15 mg, UNK
     Route: 048
     Dates: start: 20080802
  31. NITROGLYCERIN [Concomitant]
  32. MORPHINE [Concomitant]

REACTIONS (8)
  - Pulmonary embolism [None]
  - Injury [None]
  - Pain [None]
  - General physical health deterioration [None]
  - Emotional distress [None]
  - Anxiety [None]
  - Anhedonia [None]
  - Pain [None]
